FAERS Safety Report 11849937 (Version 1)
Quarter: 2015Q4

REPORT INFORMATION
  Report Type: Spontaneous
  Country: DE (occurrence: DE)
  Receive Date: 20151218
  Receipt Date: 20151218
  Transmission Date: 20160305
  Serious: Yes (Other)
  Sender: FDA-Public Use
  Company Number: DE-PFIZER INC-2015432516

PATIENT
  Sex: Female

DRUGS (1)
  1. LYRICA [Suspect]
     Active Substance: PREGABALIN
     Indication: NEURALGIA
     Dosage: 75 MG, 2X/DAY IN THE MORNING AND IN THE EVENING
     Dates: start: 201511

REACTIONS (6)
  - Alanine aminotransferase increased [Unknown]
  - Coagulopathy [Unknown]
  - Gamma-glutamyltransferase increased [Unknown]
  - Spinal column stenosis [Unknown]
  - Aspartate aminotransferase increased [Unknown]
  - Blood lactate dehydrogenase increased [Unknown]
